FAERS Safety Report 7896301-5 (Version None)
Quarter: 2011Q4

REPORT INFORMATION
  Report Type: 
  Country: None (occurrence: None)
  Receive Date: 20111106
  Receipt Date: 20110908
  Transmission Date: 20120403
  Serious: No
  Sender: FDA-Public Use
  Company Number: US-AMGEN-USASP2011042244

PATIENT
  Age: 45 Year
  Sex: Female

DRUGS (8)
  1. CALCIUM CARBONATE W/VITAMIN D      /00944201/ [Concomitant]
     Dosage: 1250 MG, BID
     Route: 048
  2. ATIVAN [Concomitant]
  3. ENBREL [Suspect]
     Indication: RHEUMATOID ARTHRITIS
     Dosage: 50 MG, QWK
     Dates: start: 20090617
  4. CELEXA [Concomitant]
     Dosage: 20 MG, QD
  5. NEXIUM [Concomitant]
     Dosage: 20 MG, QD
     Route: 048
  6. SYNTHROID [Concomitant]
     Dosage: 50 MUG, QD
     Route: 048
  7. CELEBREX [Concomitant]
     Dosage: 200 MG, BID
     Route: 048
  8. IRON [Concomitant]

REACTIONS (14)
  - BUNION [None]
  - WEIGHT LOSS POOR [None]
  - PANIC ATTACK [None]
  - HYPERSOMNIA [None]
  - GASTROOESOPHAGEAL REFLUX DISEASE [None]
  - DIZZINESS [None]
  - ASTHENIA [None]
  - FATIGUE [None]
  - WEIGHT INCREASED [None]
  - HEADACHE [None]
  - OSTEOARTHRITIS [None]
  - STARVATION [None]
  - ARTHRALGIA [None]
  - POOR QUALITY SLEEP [None]
